FAERS Safety Report 7314068-6 (Version None)
Quarter: 2011Q1

REPORT INFORMATION
  Report Type: 
  Country: None (occurrence: None)
  Receive Date: 20110225
  Receipt Date: 20100610
  Transmission Date: 20110831
  Serious: Yes (Other)
  Sender: FDA-Public Use
  Company Number: US-MYLANLABS-2010S1007150

PATIENT
  Age: 20 Year
  Sex: Female
  Weight: 62.14 kg

DRUGS (6)
  1. ACCUTANE [Suspect]
     Indication: ACNE CYSTIC
     Dates: start: 20091116
  2. CLARAVIS [Suspect]
     Route: 048
  3. OCELLA [Concomitant]
  4. CLARAVIS [Suspect]
     Indication: ACNE CYSTIC
     Route: 048
  5. AMNESTEEM [Suspect]
     Route: 048
     Dates: end: 20100420
  6. AMNESTEEM [Suspect]
     Indication: ACNE CYSTIC
     Route: 048
     Dates: end: 20100420

REACTIONS (2)
  - BENIGN INTRACRANIAL HYPERTENSION [None]
  - OPTIC NEURITIS [None]
